FAERS Safety Report 7285578-5 (Version None)
Quarter: 2011Q1

REPORT INFORMATION
  Report Type: 
  Country: None (occurrence: None)
  Receive Date: 20110210
  Receipt Date: 20110207
  Transmission Date: 20110831
  Serious: Yes (Hospitalization)
  Sender: FDA-Public Use
  Company Number: A0773334A

PATIENT
  Age: 85 Year
  Sex: Female
  Weight: 76.4 kg

DRUGS (4)
  1. LISINOPRIL [Concomitant]
  2. COLACE [Concomitant]
  3. RANITIDINE [Concomitant]
  4. AVANDIA [Suspect]
     Indication: DIABETES MELLITUS
     Route: 048
     Dates: start: 20040817, end: 20060401

REACTIONS (4)
  - CORONARY ARTERY DISEASE [None]
  - CARDIAC MURMUR [None]
  - CARDIAC FAILURE CONGESTIVE [None]
  - DIASTOLIC DYSFUNCTION [None]
